FAERS Safety Report 7979528-3 (Version None)
Quarter: 2011Q4

REPORT INFORMATION
  Report Type: 
  Country: None (occurrence: None)
  Receive Date: 20111214
  Receipt Date: 20111130
  Transmission Date: 20120403
  Serious: Yes (Other)
  Sender: FDA-Public Use
  Company Number: PHHY2011BR097231

PATIENT
  Age: 88 Year
  Sex: Male

DRUGS (1)
  1. DIOVAN [Suspect]
     Indication: ANTIPLATELET THERAPY
     Dosage: 160 MG, DAILY
     Dates: start: 20010101

REACTIONS (2)
  - EYE DISORDER [None]
  - CYANOPSIA [None]
